FAERS Safety Report 4545025-0 (Version None)
Quarter: 2005Q1

REPORT INFORMATION
  Report Type: 
  Country: None (occurrence: None)
  Receive Date: 20050105
  Receipt Date: 20041229
  Transmission Date: 20050727
  Serious: Yes (Death)
  Sender: FDA-Public Use
  Company Number: US-GLAXOSMITHKLINE-A0538741A

PATIENT
  Age: 86 Year
  Sex: Male

DRUGS (1)
  1. AQUAFRESH TOOTHPASTE [Suspect]
     Indication: DENTAL CARE

REACTIONS (1)
  - MYOCARDIAL INFARCTION [None]
